FAERS Safety Report 5995379-3 (Version None)
Quarter: 2008Q4

REPORT INFORMATION
  Report Type: 
  Country: None (occurrence: None)
  Receive Date: 20081212
  Receipt Date: 20081201
  Transmission Date: 20090506
  Serious: Yes (Death)
  Sender: FDA-Public Use
  Company Number: GB-TEVA-181910ISR

PATIENT
  Sex: Female

DRUGS (4)
  1. PREDNISOLONE [Suspect]
  2. AZATHIOPRINE [Suspect]
  3. MYCOPHENOLATE MOFETIL [Suspect]
  4. CYCLOSPORINE [Suspect]

REACTIONS (4)
  - ACUTE MYELOID LEUKAEMIA [None]
  - MYELOFIBROSIS [None]
  - PANCYTOPENIA [None]
  - PYREXIA [None]
